FAERS Safety Report 17763287 (Version 1)
Quarter: 2020Q2

REPORT INFORMATION
  Report Type: Report from Study
  Country: None (occurrence: CO)
  Receive Date: 20200509
  Receipt Date: 20200509
  Transmission Date: 20200714
  Serious: Yes (Death)
  Sender: FDA-Public Use
  Company Number: CO-ABBVIE-20K-036-3398104-00

PATIENT
  Age: 61 Year
  Sex: Male
  Weight: 55 kg

DRUGS (5)
  1. CLONIDINE. [Concomitant]
     Active Substance: CLONIDINE
     Indication: HYPERTENSION
     Route: 048
     Dates: start: 202005
  2. ZEMPLAR [Suspect]
     Active Substance: PARICALCITOL
     Indication: HYPERPARATHYROIDISM SECONDARY
     Route: 042
     Dates: start: 20170524, end: 20200309
  3. ZEMPLAR [Suspect]
     Active Substance: PARICALCITOL
     Indication: CHRONIC KIDNEY DISEASE
  4. INSULIN GLARGINE [Concomitant]
     Active Substance: INSULIN GLARGINE
     Indication: DIABETES MELLITUS
     Route: 058
     Dates: start: 202005
  5. OMEPRAZOLE. [Concomitant]
     Active Substance: OMEPRAZOLE
     Indication: GASTRITIS
     Route: 048
     Dates: start: 202005

REACTIONS (3)
  - Coronary artery disease [Fatal]
  - General physical health deterioration [Fatal]
  - Acute myocardial infarction [Fatal]

NARRATIVE: CASE EVENT DATE: 20200501
